FAERS Safety Report 14151911 (Version 1)
Quarter: 2017Q4

REPORT INFORMATION
  Report Type: Spontaneous
  Country: US (occurrence: US)
  Receive Date: 20171101
  Receipt Date: 20171101
  Transmission Date: 20180321
  Serious: Yes (Life-Threatening, Hospitalization)
  Sender: FDA-Public Use
  Company Number: None

PATIENT
  Age: 81 Year
  Sex: Female

DRUGS (10)
  1. BRIMONIDINE [Concomitant]
     Active Substance: BRIMONIDINE TARTRATE
  2. RANITIDINE. [Concomitant]
     Active Substance: RANITIDINE
  3. ELIQUIS [Suspect]
     Active Substance: APIXABAN
     Indication: PERIPHERAL VASCULAR DISORDER
     Route: 048
     Dates: start: 20170821, end: 20171009
  4. PLAVIX [Concomitant]
     Active Substance: CLOPIDOGREL BISULFATE
  5. PRAVASTATIN. [Concomitant]
     Active Substance: PRAVASTATIN
  6. ASPIRIN. [Concomitant]
     Active Substance: ASPIRIN
  7. LEVOTHYROXINE. [Concomitant]
     Active Substance: LEVOTHYROXINE
  8. INSULIN GLARGINE [Concomitant]
     Active Substance: INSULIN GLARGINE
  9. DORZOLAMIDE [Concomitant]
     Active Substance: DORZOLAMIDE
  10. SEVELAMER [Concomitant]
     Active Substance: SEVELAMER

REACTIONS (5)
  - Upper gastrointestinal haemorrhage [None]
  - Hypotension [None]
  - Tachycardia [None]
  - Fall [None]
  - Anaemia [None]

NARRATIVE: CASE EVENT DATE: 20170919
